FAERS Safety Report 9399096 (Version 1)
Quarter: 2013Q3

REPORT INFORMATION
  Report Type: Report from Study
  Country: FR (occurrence: FR)
  Receive Date: 20130715
  Receipt Date: 20130715
  Transmission Date: 20140515
  Serious: Yes (Hospitalization)
  Sender: FDA-Public Use
  Company Number: FR-ROCHE-1245380

PATIENT
  Age: 81 Year
  Sex: Female

DRUGS (5)
  1. TOCILIZUMAB [Suspect]
     Indication: RHEUMATOID ARTHRITIS
     Dosage: 8 MG/KG
     Route: 041
     Dates: start: 20110928
  2. TOCILIZUMAB [Suspect]
     Dosage: 8 MG/KG
     Route: 041
     Dates: start: 20121004, end: 20130424
  3. CORTANCYL [Concomitant]
     Route: 065
  4. CORTANCYL [Concomitant]
     Route: 065
  5. PARIET [Concomitant]
     Route: 065

REACTIONS (3)
  - Osteoarthritis [Recovered/Resolved]
  - Stasis dermatitis [Recovered/Resolved]
  - Fungal infection [Recovered/Resolved]
